FAERS Safety Report 9721850 (Version 1)
Quarter: 2013Q4

REPORT INFORMATION
  Report Type: Spontaneous
  Country: US (occurrence: US)
  Receive Date: 20131201
  Receipt Date: 20131201
  Transmission Date: 20140711
  Serious: No
  Sender: FDA-Public Use
  Company Number: US-ABBVIE-13P-163-1155703-00

PATIENT
  Age: 64 Year
  Sex: Male
  Weight: 113.05 kg

DRUGS (5)
  1. ANDROGEL [Suspect]
     Indication: PRODUCT USED FOR UNKNOWN INDICATION
     Dosage: FOUR PUMPS DAILY
     Route: 061
     Dates: end: 201308
  2. ANDROGEL [Suspect]
     Dosage: SIX PUMPS DAILY
     Route: 061
     Dates: start: 201308
  3. LISINOPRIL [Concomitant]
     Indication: PRODUCT USED FOR UNKNOWN INDICATION
  4. VICTOZA [Concomitant]
     Indication: PRODUCT USED FOR UNKNOWN INDICATION
  5. LEVEMIR [Concomitant]
     Indication: PRODUCT USED FOR UNKNOWN INDICATION

REACTIONS (1)
  - Blood testosterone decreased [Not Recovered/Not Resolved]
